FAERS Safety Report 21274066 (Version 5)
Quarter: 2022Q4

REPORT INFORMATION
  Report Type: Report from Study
  Country: US (occurrence: US)
  Receive Date: 20220831
  Receipt Date: 20221213
  Transmission Date: 20230113
  Serious: Yes (Hospitalization, Other)
  Sender: FDA-Public Use
  Company Number: US-GILEAD-2022-0589818

PATIENT
  Age: 68 Year
  Sex: Female

DRUGS (5)
  1. AMBRISENTAN [Suspect]
     Active Substance: AMBRISENTAN
     Indication: Pulmonary arterial hypertension
     Dosage: 10 MG, QD
     Route: 065
     Dates: start: 20191111
  2. AMBRISENTAN [Suspect]
     Active Substance: AMBRISENTAN
     Dosage: 5 MG, QD
     Route: 065
     Dates: start: 20191111
  3. VELETRI [Concomitant]
     Active Substance: EPOPROSTENOL
  4. COUMADIN [Concomitant]
     Active Substance: WARFARIN SODIUM
  5. ADCIRCA [Concomitant]
     Active Substance: TADALAFIL

REACTIONS (11)
  - Pyrexia [Unknown]
  - Chills [Unknown]
  - Hyperhidrosis [Unknown]
  - Vascular device infection [Unknown]
  - Catheter site infection [Unknown]
  - Chest discomfort [Unknown]
  - Nausea [Unknown]
  - Vomiting [Unknown]
  - Sinusitis [Not Recovered/Not Resolved]
  - Illness [Not Recovered/Not Resolved]
  - Tracheitis [Unknown]

NARRATIVE: CASE EVENT DATE: 20220801
